FAERS Safety Report 6636242-4 (Version None)
Quarter: 2010Q1

REPORT INFORMATION
  Report Type: 
  Country: None (occurrence: None)
  Receive Date: 20100316
  Receipt Date: 20100309
  Transmission Date: 20100710
  Serious: Yes (Other)
  Sender: FDA-Public Use
  Company Number: JP-PFIZER INC-2010031615

PATIENT

DRUGS (1)
  1. DETRUSITOL [Suspect]
     Dosage: UNK
     Route: 048

REACTIONS (1)
  - AMNESIA [None]
